FAERS Safety Report 4595718-4 (Version None)
Quarter: 2005Q1

REPORT INFORMATION
  Report Type: 
  Country: None (occurrence: None)
  Receive Date: 20050224
  Receipt Date: 20050209
  Transmission Date: 20050727
  Serious: Yes (Hospitalization)
  Sender: FDA-Public Use
  Company Number: 2005JP000332

PATIENT
  Age: 51 Year
  Sex: Female

DRUGS (3)
  1. PROGRAF [Suspect]
     Indication: RENAL TRANSPLANT
     Dates: start: 20031201
  2. MYCOPHENOLATE MOFETIL CAPSULE [Concomitant]
  3. METHYLPREDNISOLONE [Concomitant]

REACTIONS (5)
  - ANURIA [None]
  - DIALYSIS [None]
  - POST PROCEDURAL COMPLICATION [None]
  - PYONEPHROSIS [None]
  - RENAL DISORDER [None]
